FAERS Safety Report 5808736-2 (Version None)
Quarter: 2008Q3

REPORT INFORMATION
  Report Type: 
  Country: None (occurrence: None)
  Receive Date: 20080714
  Receipt Date: 20080703
  Transmission Date: 20090109
  Serious: Yes (Other)
  Sender: FDA-Public Use
  Company Number: US-BAYER-200812710BCC

PATIENT
  Age: 47 Year
  Sex: Female
  Weight: 68 kg

DRUGS (3)
  1. ALKA SELTZER PLUS EFFERVESCENT COLD CHERRY BURST TABLETS [Suspect]
     Indication: NASOPHARYNGITIS
     Dosage: TOTAL DAILY DOSE: 6 DF
     Route: 048
     Dates: start: 20080701
  2. KLONOPIN [Concomitant]
  3. DEPAKOTE [Concomitant]

REACTIONS (1)
  - PYREXIA [None]
